FAERS Safety Report 8446096-1 (Version None)
Quarter: 2012Q2

REPORT INFORMATION
  Report Type: 
  Country: None (occurrence: None)
  Receive Date: 20120618
  Receipt Date: 20120614
  Transmission Date: 20120825
  Serious: Yes (Other)
  Sender: FDA-Public Use
  Company Number: US-PFIZER INC-2012145115

PATIENT
  Sex: Female
  Weight: 67.12 kg

DRUGS (8)
  1. METOPROLOL SUCCINATE [Concomitant]
     Indication: HEART RATE ABNORMAL
     Dosage: 50 MG, DAILY
  2. DIGOXIN [Concomitant]
     Indication: HEART RATE ABNORMAL
     Dosage: 0.125 MG, DAILY
  3. AVAPRO [Concomitant]
     Indication: CORONARY ARTERY DISEASE
     Dosage: 150 MG, DAILY
  4. DIGOXIN [Concomitant]
     Indication: ATRIAL FIBRILLATION
  5. TIKOSYN [Suspect]
     Indication: ATRIAL FIBRILLATION
     Dosage: 250 UG, 2X/DAY
     Dates: start: 20120606
  6. FUROSEMIDE [Concomitant]
     Indication: FLUID RETENTION
     Dosage: 40 MG, UNK
  7. SPIRONOLACTONE [Concomitant]
     Indication: FLUID RETENTION
     Dosage: 25 MG, UNK
  8. METOPROLOL SUCCINATE [Concomitant]
     Indication: CORONARY ARTERY DISEASE

REACTIONS (1)
  - OEDEMA PERIPHERAL [None]
